FAERS Safety Report 5054036-0 (Version None)
Quarter: 2006Q3

REPORT INFORMATION
  Report Type: 
  Country: None (occurrence: None)
  Receive Date: 20060713
  Receipt Date: 20060129
  Transmission Date: 20061208
  Serious: No
  Sender: FDA-Public Use
  Company Number: 35785

PATIENT
  Age: 77 Year
  Sex: Female

DRUGS (3)
  1. MAXITROL [Suspect]
     Dosage: OPHT
     Route: 047
     Dates: start: 20060118, end: 20060125
  2. FUSIDIC ACID 1% EYE DROPS [Concomitant]
  3. CARBOMER [Concomitant]

REACTIONS (3)
  - CORNEAL ABRASION [None]
  - CORNEAL THINNING [None]
  - ULCERATIVE KERATITIS [None]
